FAERS Safety Report 9123144 (Version 1)
Quarter: 2013Q1

REPORT INFORMATION
  Report Type: Spontaneous
  Country: US (occurrence: US)
  Receive Date: 20130115
  Receipt Date: 20130115
  Transmission Date: 20140127
  Serious: Yes (Other)
  Sender: FDA-Public Use
  Company Number: US-BAYER-2013-004190

PATIENT
  Age: 23 Year
  Sex: Female

DRUGS (1)
  1. MIRENA [Suspect]
     Dosage: 20 MCG/24HR, CONT
     Route: 015
     Dates: start: 20110509

REACTIONS (9)
  - Device dislocation [None]
  - Pregnancy with contraceptive device [None]
  - Fatigue [None]
  - Breast tenderness [None]
  - Headache [None]
  - Pruritus [None]
  - Pain [None]
  - Weight increased [None]
  - Drug ineffective [None]
